FAERS Safety Report 5615780-7 (Version None)
Quarter: 2008Q1

REPORT INFORMATION
  Report Type: 
  Country: None (occurrence: None)
  Receive Date: 20080206
  Receipt Date: 20080125
  Transmission Date: 20080703
  Serious: Yes (Other)
  Sender: FDA-Public Use
  Company Number: GB-ROCHE-543468

PATIENT
  Age: 33 Year
  Sex: Female
  Weight: 127 kg

DRUGS (1)
  1. ORLISTAT [Suspect]
     Indication: OBESITY
     Route: 048
     Dates: start: 20071005, end: 20080101

REACTIONS (1)
  - BENIGN NEOPLASM [None]
